FAERS Safety Report 22257115 (Version 3)
Quarter: 2023Q2

REPORT INFORMATION
  Report Type: Spontaneous
  Country: CL (occurrence: CL)
  Receive Date: 20230427
  Receipt Date: 20230529
  Transmission Date: 20230721
  Serious: Yes (Hospitalization)
  Sender: FDA-Public Use
  Company Number: CL-BEIGENE USA INC-BGN-2022-010633

PATIENT

DRUGS (1)
  1. BRUKINSA [Suspect]
     Active Substance: ZANUBRUTINIB
     Indication: Waldenstrom^s macroglobulinaemia
     Dosage: 80 MILLIGRAM, Q12H
     Route: 048
     Dates: start: 20220920, end: 20230418

REACTIONS (4)
  - Blood immunoglobulin M increased [Unknown]
  - Drug effect less than expected [Unknown]
  - Somnolence [Not Recovered/Not Resolved]
  - Underdose [Unknown]

NARRATIVE: CASE EVENT DATE: 20221212
